FAERS Safety Report 13297297 (Version 1)
Quarter: 2017Q1

REPORT INFORMATION
  Report Type: Spontaneous
  Country: US (occurrence: US)
  Receive Date: 20170304
  Receipt Date: 20170304
  Transmission Date: 20170428
  Serious: Yes (Other)
  Sender: FDA-Public Use
  Company Number: None

PATIENT
  Age: 75 Year
  Sex: Female
  Weight: 60.75 kg

DRUGS (1)
  1. RECLAST [Suspect]
     Active Substance: ZOLEDRONIC ACID
     Indication: BONE DENSITY ABNORMAL
     Dosage: OTHER ROUTE:INFUSION?
     Dates: start: 20110311

REACTIONS (4)
  - Necrosis [None]
  - Bone graft [None]
  - Bone pain [None]
  - Tooth disorder [None]

NARRATIVE: CASE EVENT DATE: 20110311
